FAERS Safety Report 5584445-2 (Version None)
Quarter: 2008Q1

REPORT INFORMATION
  Report Type: 
  Country: None (occurrence: None)
  Receive Date: 20080108
  Receipt Date: 20071228
  Transmission Date: 20080703
  Serious: Yes (Other)
  Sender: FDA-Public Use
  Company Number: US-JNJFOC-20071103505

PATIENT
  Sex: Male
  Weight: 68.95 kg

DRUGS (6)
  1. ULTRAM ER [Suspect]
     Indication: ABDOMINAL PAIN
     Route: 048
  2. TRAMADOL HCL [Suspect]
     Indication: BACK PAIN
     Route: 048
  3. TRAMADOL HCL [Suspect]
     Indication: ABDOMINAL PAIN
     Route: 048
  4. AMBIEN [Concomitant]
     Indication: SLEEP DISORDER
     Route: 065
  5. SSRI [Concomitant]
     Indication: DEPRESSION
     Route: 065
  6. VICODIN [Concomitant]
     Indication: PAIN
     Route: 065

REACTIONS (1)
  - ERYTHEMA MULTIFORME [None]
